FAERS Safety Report 7939238-5 (Version None)
Quarter: 2011Q4

REPORT INFORMATION
  Report Type: 
  Country: None (occurrence: None)
  Receive Date: 20111124
  Receipt Date: 20111116
  Transmission Date: 20120403
  Serious: Yes (Hospitalization)
  Sender: FDA-Public Use
  Company Number: CA-JNJFOC-20111108318

PATIENT
  Sex: Male
  Weight: 116.9 kg

DRUGS (11)
  1. REMICADE [Suspect]
     Indication: CROHN'S DISEASE
     Dosage: HAS HAD 37 INFUSIONS
  2. METFORMIN [Concomitant]
  3. FOLIC ACID [Concomitant]
  4. JANUVIA [Concomitant]
  5. VITAMIN B-12 [Concomitant]
  6. K-CITRA [Concomitant]
  7. ASPIRIN [Concomitant]
  8. ATENOLOL [Concomitant]
  9. PANTOPRAZOLE SODIUM [Concomitant]
  10. MICARDIS [Concomitant]
  11. FUROSEMIDE [Concomitant]

REACTIONS (2)
  - DIARRHOEA HAEMORRHAGIC [None]
  - SURGERY [None]
